FAERS Safety Report 10529816 (Version 1)
Quarter: 2014Q4

REPORT INFORMATION
  Report Type: Spontaneous
  Country: US (occurrence: US)
  Receive Date: 20141021
  Receipt Date: 20141021
  Transmission Date: 20150528
  Serious: Yes (Other)
  Sender: FDA-Public Use
  Company Number: US-ROCHE-1477429

PATIENT
  Age: 63 Year
  Sex: Male

DRUGS (2)
  1. ACTILYSE [Suspect]
     Active Substance: ALTEPLASE
     Indication: RETINAL ARTERY OCCLUSION
     Route: 042
  2. ACTILYSE [Suspect]
     Active Substance: ALTEPLASE
     Route: 041

REACTIONS (2)
  - Retinal artery embolism [Unknown]
  - Retinal ischaemia [Unknown]
